FAERS Safety Report 25934149 (Version 1)
Quarter: 2025Q4

REPORT INFORMATION
  Report Type: Report from Study
  Country: US (occurrence: US)
  Receive Date: 20251017
  Receipt Date: 20251017
  Transmission Date: 20260118
  Serious: Yes (Hospitalization)
  Sender: REGENERON
  Company Number: US-REGENERON PHARMACEUTICALS, INC.-2025-161329

PATIENT
  Sex: Female

DRUGS (1)
  1. EYLEA [Suspect]
     Active Substance: AFLIBERCEPT
     Indication: Dry eye
     Dosage: 2 MG, EVERY 4 WEEKS, INTO EACH EYE, STRENGTH: 2 MG/0.05 ML, PRE-FILLED SYRINGE (GERRESHEIMER)

REACTIONS (2)
  - Hospitalisation [Unknown]
  - Off label use [Unknown]
